FAERS Safety Report 6844607-0 (Version None)
Quarter: 2010Q3

REPORT INFORMATION
  Report Type: 
  Country: None (occurrence: None)
  Receive Date: 20100715
  Receipt Date: 20100706
  Transmission Date: 20110219
  Serious: Yes (Death, Hospitalization)
  Sender: FDA-Public Use
  Company Number: SE-JNJFOC-20080806449

PATIENT
  Age: 81 Year
  Sex: Female

DRUGS (9)
  1. REMICADE [Suspect]
     Indication: RHEUMATOID ARTHRITIS
     Route: 042
  2. METHOTREXATE [Concomitant]
     Indication: ARTHRALGIA
  3. PREDNISOLONE [Concomitant]
     Indication: ARTHRALGIA
  4. ACETAMINOPHEN [Concomitant]
     Indication: ARTHRALGIA
  5. TRADOLAN [Concomitant]
     Indication: ARTHRALGIA
  6. CALCICHEW-D3 [Concomitant]
  7. FOLACIN [Concomitant]
  8. OMAPRAZOL [Concomitant]
     Indication: GASTROINTESTINAL DISORDER
  9. FURIX [Concomitant]
     Indication: OEDEMA PERIPHERAL

REACTIONS (5)
  - ANAEMIA [None]
  - COLON CANCER [None]
  - DEATH [None]
  - FALL [None]
  - HEPATIC NEOPLASM MALIGNANT [None]
